FAERS Safety Report 5627349-9 (Version None)
Quarter: 2008Q1

REPORT INFORMATION
  Report Type: 
  Country: None (occurrence: None)
  Receive Date: 20080131
  Receipt Date: 20071120
  Transmission Date: 20080703
  Serious: No
  Sender: FDA-Public Use
  Company Number: 163-21880-07101725

PATIENT
  Age: 66 Year
  Sex: Male

DRUGS (3)
  1. REVLIMID [Suspect]
     Indication: MULTIPLE MYELOMA
     Dosage: 5 MG, DAILY X 21 DAYS, ORAL
     Route: 048
     Dates: start: 20071026
  2. PHENERGAN WITH CODEINE (PHENERGAN WITH CODEINE) [Concomitant]
  3. AMBIEN CR [Concomitant]

REACTIONS (1)
  - MYALGIA [None]
